FAERS Safety Report 5988486-2 (Version None)
Quarter: 2008Q4

REPORT INFORMATION
  Report Type: 
  Country: None (occurrence: None)
  Receive Date: 20081208
  Receipt Date: 20081208
  Transmission Date: 20090506
  Serious: No
  Sender: FDA-Public Use
  Company Number: None

PATIENT
  Age: 44 Year
  Sex: Female
  Weight: 56.6996 kg

DRUGS (2)
  1. CYMBALTA [Suspect]
     Indication: GENERALISED ANXIETY DISORDER
     Dosage: 60MG 1 TIMER A DAY PO
     Route: 048
     Dates: start: 20051115, end: 20081214
  2. DULOXETINE HYDROCHLORIDE [Concomitant]

REACTIONS (11)
  - CHILLS [None]
  - CONSTIPATION [None]
  - DISTURBANCE IN ATTENTION [None]
  - DRUG WITHDRAWAL SYNDROME [None]
  - FEELING JITTERY [None]
  - HEADACHE [None]
  - INSOMNIA [None]
  - LIBIDO DECREASED [None]
  - NAUSEA [None]
  - NERVOUSNESS [None]
  - PARAESTHESIA [None]
